FAERS Safety Report 5190915-1 (Version None)
Quarter: 2006Q4

REPORT INFORMATION
  Report Type: 
  Country: None (occurrence: None)
  Receive Date: 20061222
  Receipt Date: 20061214
  Transmission Date: 20070319
  Serious: Yes (Other)
  Sender: FDA-Public Use
  Company Number: BE-ABBOTT-06P-013-0353376-00

PATIENT
  Sex: Female

DRUGS (3)
  1. DEPAKENE [Suspect]
     Indication: CONVULSION PROPHYLAXIS
     Route: 048
  2. DEPAKENE [Suspect]
     Route: 042
  3. PHENYTOIN SODIUM [Concomitant]
     Indication: DRUG USE FOR UNKNOWN INDICATION

REACTIONS (3)
  - CATATONIA [None]
  - DELUSION [None]
  - PSYCHOTIC DISORDER [None]
